FAERS Safety Report 17406000 (Version 1)
Quarter: 2020Q1

REPORT INFORMATION
  Report Type: Spontaneous
  Country: US (occurrence: US)
  Receive Date: 20200212
  Receipt Date: 20200212
  Transmission Date: 20200409
  Serious: No
  Sender: FDA-Public Use
  Company Number: US-ALLERGAN-1931888US

PATIENT
  Age: 53 Year
  Sex: Female

DRUGS (4)
  1. DROXYL [ALUMINIUM HYDROXIDE\MAGNESIUM HYDROXIDE\SIMETICONE] [Suspect]
     Active Substance: ALUMINUM HYDROXIDE\DIMETHICONE\MAGNESIUM HYDROXIDE
     Indication: PRODUCT USED FOR UNKNOWN INDICATION
     Dosage: UNK
     Route: 065
  2. CLINDAMYCIN 2% LOTION [Concomitant]
     Route: 061
  3. RETIN-A MICRO [Suspect]
     Active Substance: TRETINOIN
     Indication: ACNE
     Dosage: UNK, QD
     Route: 061
  4. TAZORAC [Suspect]
     Active Substance: TAZAROTENE
     Indication: ACNE
     Dosage: UNK UNK, QD
     Route: 061
     Dates: start: 2013, end: 201902

REACTIONS (5)
  - Expired product administered [Unknown]
  - Perioral dermatitis [Recovered/Resolved]
  - Application site dryness [Unknown]
  - Wrong technique in product usage process [Unknown]
  - Sunburn [Unknown]

NARRATIVE: CASE EVENT DATE: 2018
